FAERS Safety Report 9521301 (Version 4)
Quarter: 2014Q2

REPORT INFORMATION
  Report Type: Report from Study
  Country: JP (occurrence: JP)
  Receive Date: 20130913
  Receipt Date: 20140627
  Transmission Date: 20141212
  Serious: Yes (Death, Other)
  Sender: FDA-Public Use
  Company Number: JP-BAYER-2013-030316

PATIENT
  Age: 75 Year
  Sex: Female
  Weight: 45 kg

DRUGS (11)
  1. XARELTO [Suspect]
     Indication: CEREBROVASCULAR ACCIDENT PROPHYLAXIS
     Dosage: 10 MG, QD
     Route: 048
     Dates: start: 20120713, end: 20131127
  2. XARELTO [Interacting]
     Indication: THROMBOSIS PROPHYLAXIS
  3. XARELTO [Interacting]
     Indication: ATRIAL FIBRILLATION
  4. BAYASPIRIN [Interacting]
     Dosage: 100 MG, QD
     Route: 048
     Dates: end: 20131127
  5. CRESTOR [Concomitant]
     Dosage: 2.5 MG, QD
     Route: 048
     Dates: end: 20131127
  6. THYRADIN S [Concomitant]
     Dosage: 25 ?G, QD
     Route: 048
     Dates: end: 20131127
  7. FAMOSTAGINE [Concomitant]
     Indication: PROPHYLAXIS
     Dosage: 20 MG, QD
     Route: 048
     Dates: end: 20131127
  8. SELECTOL [Concomitant]
     Dosage: 400 MG, QD
     Route: 048
     Dates: end: 20131127
  9. FUROSEMIDE [Concomitant]
     Dosage: 80 MG, QD
     Route: 048
     Dates: end: 20131127
  10. ALDACTONE A [Concomitant]
     Dosage: 50 MG, QD
     Route: 048
     Dates: end: 20120727
  11. SPIRONOLACTONE [Concomitant]
     Dosage: 50 MG, QD
     Route: 048
     Dates: start: 20120728, end: 20131127

REACTIONS (9)
  - Cardiac failure [Recovered/Resolved]
  - Haemorrhage subcutaneous [Recovering/Resolving]
  - Cellulitis [Recovered/Resolved]
  - Renal impairment [Recovered/Resolved]
  - Drug interaction [None]
  - Cholecystitis [Fatal]
  - Pericardial effusion [Fatal]
  - Anaemia [Recovered/Resolved]
  - Right ventricular failure [Recovering/Resolving]
